FAERS Safety Report 4636751-3 (Version None)
Quarter: 2005Q2

REPORT INFORMATION
  Report Type: 
  Country: None (occurrence: None)
  Receive Date: 20050414
  Receipt Date: 20050401
  Transmission Date: 20051028
  Serious: Yes (Death)
  Sender: FDA-Public Use
  Company Number: 2005054691

PATIENT
  Age: 36 Year
  Sex: Female

DRUGS (1)
  1. SOLU-MEDROL [Suspect]
     Indication: ILL-DEFINED DISORDER
     Dosage: 1 GRAM, INTRAVENOUS
     Route: 042
     Dates: end: 20050226

REACTIONS (1)
  - DEATH [None]
